FAERS Safety Report 18202175 (Version 4)
Quarter: 2021Q1

REPORT INFORMATION
  Report Type: Spontaneous
  Country: US (occurrence: US)
  Receive Date: 20200827
  Receipt Date: 20210204
  Transmission Date: 20210419
  Serious: No
  Sender: FDA-Public Use
  Company Number: US-PFIZER INC-2019056207

PATIENT
  Age: 59 Year
  Sex: Female
  Weight: 90.7 kg

DRUGS (4)
  1. LYRICA [Suspect]
     Active Substance: PREGABALIN
     Dosage: 200 MG, 2X/DAY (TAKE 2 CAPSULES (200 MG TOTAL) BY MOUTH 2 (TWO) TIMES A DAY)
     Route: 048
  2. LYRICA [Suspect]
     Active Substance: PREGABALIN
     Indication: NEUROPATHY PERIPHERAL
     Dosage: 300 MG, DAILY TAKE 1 CAPSULE IN THE AM AND 2 CAPSULE AT NIGHT)
     Route: 048
     Dates: start: 20190125
  3. LYRICA [Suspect]
     Active Substance: PREGABALIN
     Dosage: 200 MG, 2X/DAY (TAKE 2 CAPSULES (200 MG TOTAL) BY MOUTH 2 (TWO) TIMES A DAY)
     Route: 048
     Dates: start: 20191113
  4. LYRICA [Suspect]
     Active Substance: PREGABALIN
     Indication: TOXIC NEUROPATHY
     Dosage: 300 MG, DAILY TAKE 1 CAPSULE IN THE AM AND 2 CAPSULE AT NIGHT)
     Route: 048
     Dates: start: 20190320

REACTIONS (2)
  - Gait disturbance [Unknown]
  - Off label use [Unknown]
